FAERS Safety Report 7444719-7 (Version None)
Quarter: 2011Q2

REPORT INFORMATION
  Report Type: 
  Country: None (occurrence: None)
  Receive Date: 20110420
  Receipt Date: 20110405
  Transmission Date: 20111010
  Serious: Yes (Hospitalization, Disabling, Other)
  Sender: FDA-Public Use
  Company Number: 2010MA004182

PATIENT
  Sex: Female
  Weight: 90.7194 kg

DRUGS (20)
  1. HYDROCHLOROTHIAZIDE [Concomitant]
  2. ROPINIROLE [Concomitant]
  3. NEXIUM [Concomitant]
  4. PREMARIN [Concomitant]
  5. METOCLOPRAMIDE [Suspect]
     Indication: ABDOMINAL PAIN
     Dosage: 10 MG;QID;PO
     Route: 048
     Dates: start: 20010301, end: 20090301
  6. ESOMEPRAZOLE [Concomitant]
  7. DOMPERIDONE [Concomitant]
  8. LIPITOR [Concomitant]
  9. AMLODIPINE BESYLATE [Concomitant]
  10. GABAPENTIN [Concomitant]
  11. IBUPROFEN [Concomitant]
  12. ROSUVASTATIN [Concomitant]
  13. PAXIL [Concomitant]
  14. EFFEXOR [Concomitant]
  15. XOPENEX [Concomitant]
  16. ATROVENT [Concomitant]
  17. ALBUTEROL [Concomitant]
  18. REQUIP [Concomitant]
  19. REQUIP [Concomitant]
  20. VICODIN [Concomitant]

REACTIONS (47)
  - RESTLESSNESS [None]
  - RESTLESS LEGS SYNDROME [None]
  - HYPOTHYROIDISM [None]
  - SUPRAVENTRICULAR TACHYCARDIA [None]
  - PARAESTHESIA [None]
  - COGWHEEL RIGIDITY [None]
  - ANXIETY [None]
  - BLOOD THYROID STIMULATING HORMONE INCREASED [None]
  - RESPIRATORY ALKALOSIS [None]
  - ABDOMINAL PAIN [None]
  - DRUG DOSE OMISSION [None]
  - DECREASED APPETITE [None]
  - MOVEMENT DISORDER [None]
  - PAIN [None]
  - WEIGHT DECREASED [None]
  - FATIGUE [None]
  - HEPATIC STEATOSIS [None]
  - CHRONIC OBSTRUCTIVE PULMONARY DISEASE [None]
  - EXTRAPYRAMIDAL DISORDER [None]
  - MENTAL DISORDER [None]
  - TREMOR [None]
  - INSOMNIA [None]
  - TRISMUS [None]
  - ERUCTATION [None]
  - PSYCHIATRIC SYMPTOM [None]
  - CEREBRAL ATROPHY [None]
  - GAIT DISTURBANCE [None]
  - VOMITING [None]
  - APATHY [None]
  - RENAL CYST [None]
  - DYSKINESIA [None]
  - TARDIVE DYSKINESIA [None]
  - ACTIVITIES OF DAILY LIVING IMPAIRED [None]
  - TACHYPNOEA [None]
  - DYSPEPSIA [None]
  - HYPERTENSION [None]
  - EMPTY SELLA SYNDROME [None]
  - INJURY [None]
  - NERVOUS SYSTEM DISORDER [None]
  - HIATUS HERNIA [None]
  - HELICOBACTER TEST POSITIVE [None]
  - ECONOMIC PROBLEM [None]
  - DEPRESSION [None]
  - HAEMATEMESIS [None]
  - TREATMENT NONCOMPLIANCE [None]
  - DEPRESSED MOOD [None]
  - DUBIN-JOHNSON SYNDROME [None]
